FAERS Safety Report 7910150-0 (Version None)
Quarter: 2011Q4

REPORT INFORMATION
  Report Type: 
  Country: None (occurrence: None)
  Receive Date: 20111111
  Receipt Date: 20110922
  Transmission Date: 20120403
  Serious: Yes (Other)
  Sender: FDA-Public Use
  Company Number: GB-ROCHE-797432

PATIENT
  Sex: Female
  Weight: 76 kg

DRUGS (7)
  1. DESOGESTREL AND ETHINYL ESTRADIOL [Concomitant]
     Indication: CONTRACEPTION
     Dosage: DAILY
     Route: 048
  2. FERROUS FUMARATE [Concomitant]
     Indication: IRON DEFICIENCY ANAEMIA
     Dosage: 210MG, UNKNOWN IF DAILY DOSE OR INDIVIDUAL DOSE
     Route: 058
  3. HYDROXOCOBALAMIN [Concomitant]
     Indication: VITAMIN B12 DEFICIENCY
     Route: 058
  4. CO-DYDRAMOL [Concomitant]
     Indication: ANALGESIC THERAPY
  5. ACETAMINOPHEN [Concomitant]
     Indication: ANALGESIC THERAPY
     Route: 065
  6. ISOTRETINOIN [Suspect]
     Indication: ACNE
     Dosage: REPORTED AS ^DAILY^
     Route: 048
     Dates: start: 20110514, end: 20110814
  7. NAPROXEN [Concomitant]
     Indication: ANALGESIC THERAPY
     Route: 048

REACTIONS (3)
  - TACHYCARDIA [None]
  - NO THERAPEUTIC RESPONSE [None]
  - HORMONE LEVEL ABNORMAL [None]
